FAERS Safety Report 6689152-0 (Version None)
Quarter: 2010Q2

REPORT INFORMATION
  Report Type: 
  Country: None (occurrence: None)
  Receive Date: 20100415
  Receipt Date: 20100408
  Transmission Date: 20101027
  Serious: Yes (Disabling, Other)
  Sender: FDA-Public Use
  Company Number: 2010SP020425

PATIENT
  Sex: Male

DRUGS (3)
  1. PEGATRON (PEGYLATED INTERFERON ALFA-2B W/RIBAVIRIN) [Suspect]
     Indication: HEPATITIS C
     Dates: start: 20091113
  2. EFEXOR /01233802/ [Concomitant]
  3. XANAX [Concomitant]

REACTIONS (13)
  - ABASIA [None]
  - AMNESIA [None]
  - CONFUSIONAL STATE [None]
  - DIZZINESS [None]
  - FALL [None]
  - HOT FLUSH [None]
  - INJECTION SITE INFECTION [None]
  - MUSCULAR WEAKNESS [None]
  - NAUSEA [None]
  - RASH [None]
  - RETCHING [None]
  - VISION BLURRED [None]
  - VISUAL IMPAIRMENT [None]
